FAERS Safety Report 6819518-7 (Version None)
Quarter: 2010Q3

REPORT INFORMATION
  Report Type: 
  Country: None (occurrence: None)
  Receive Date: 20100707
  Receipt Date: 20100624
  Transmission Date: 20110219
  Serious: Yes (Other)
  Sender: FDA-Public Use
  Company Number: PHHY2010IL41557

PATIENT
  Age: 57 Year
  Sex: Female

DRUGS (2)
  1. DIOVAN [Suspect]
     Indication: HYPERTENSION
     Dosage: 80 MG/DAILY
     Route: 048
  2. OMEPRAZOLE [Concomitant]

REACTIONS (2)
  - COLORECTAL CANCER [None]
  - HEPATIC CANCER METASTATIC [None]
